FAERS Safety Report 23242706 (Version 3)
Quarter: 2023Q4

REPORT INFORMATION
  Report Type: Spontaneous
  Country: GB (occurrence: GB)
  Receive Date: 20231129
  Receipt Date: 20231222
  Transmission Date: 20240110
  Serious: Yes (Death, Other)
  Sender: FDA-Public Use
  Company Number: None

PATIENT
  Age: 1 Hour
  Sex: Female
  Weight: 2 kg

DRUGS (1)
  1. TRAZODONE [Suspect]
     Active Substance: TRAZODONE HYDROCHLORIDE
     Indication: Depression
     Dosage: UNK
     Route: 064

REACTIONS (8)
  - Pulmonary hypertension [Fatal]
  - Foetal exposure during pregnancy [Unknown]
  - Metabolic acidosis [Unknown]
  - Cardiac dysfunction [Unknown]
  - Bradycardia [Unknown]
  - Oxygen consumption increased [Unknown]
  - Pulmonary haemorrhage [Unknown]
  - Premature baby [Unknown]

NARRATIVE: CASE EVENT DATE: 20230614
